FAERS Safety Report 8614181-7 (Version None)
Quarter: 2012Q3

REPORT INFORMATION
  Report Type: 
  Country: None (occurrence: None)
  Receive Date: 20120813
  Receipt Date: 20120813
  Transmission Date: 20120928
  Serious: Yes (Other)
  Sender: FDA-Public Use
  Company Number: None

PATIENT
  Age: 62 Year
  Sex: Male

DRUGS (1)
  1. CLOPIDEGREL [Suspect]
     Indication: THROMBOSIS PROPHYLAXIS
     Dosage: 1 TABLET DAILY PO
     Route: 048
     Dates: start: 20120727, end: 20120809

REACTIONS (3)
  - RASH [None]
  - RASH PRURITIC [None]
  - DRUG INEFFECTIVE [None]
